FAERS Safety Report 7113256-1 (Version None)
Quarter: 2010Q4

REPORT INFORMATION
  Report Type: 
  Country: None (occurrence: None)
  Receive Date: 20101119
  Receipt Date: 20100407
  Transmission Date: 20110411
  Serious: No
  Sender: FDA-Public Use
  Company Number: A0854228A

PATIENT
  Sex: Female

DRUGS (3)
  1. WELLBUTRIN SR [Suspect]
     Route: 048
     Dates: start: 20080101
  2. WINE [Suspect]
  3. FOOD [Suspect]

REACTIONS (2)
  - DIARRHOEA [None]
  - VOMITING [None]
